FAERS Safety Report 20491254 (Version 2)
Quarter: 2022Q1

REPORT INFORMATION
  Report Type: Spontaneous
  Country: JP (occurrence: JP)
  Receive Date: 20220218
  Receipt Date: 20220307
  Transmission Date: 20220424
  Serious: Yes (Other)
  Sender: FDA-Public Use
  Company Number: JP-ABBVIE-22K-087-4283025-00

PATIENT
  Age: 76 Year
  Sex: Female

DRUGS (11)
  1. KALETRA [Suspect]
     Active Substance: LOPINAVIR\RITONAVIR
     Indication: COVID-19
     Route: 048
     Dates: start: 2020, end: 2020
  2. PIPERACILLIN AND TAZOBACTAM [Concomitant]
     Active Substance: PIPERACILLIN SODIUM\TAZOBACTAM SODIUM
     Indication: Product used for unknown indication
     Dates: start: 2020, end: 2020
  3. MOXIFLOXACIN HYDROCHLORIDE [Concomitant]
     Active Substance: MOXIFLOXACIN HYDROCHLORIDE
     Indication: Product used for unknown indication
     Dates: start: 2020, end: 2020
  4. OSELTAMIVIR PHOSPHATE [Concomitant]
     Active Substance: OSELTAMIVIR PHOSPHATE
     Indication: Product used for unknown indication
     Dates: start: 2020, end: 2020
  5. PERAMIVIR [Concomitant]
     Active Substance: PERAMIVIR
     Indication: Product used for unknown indication
     Dosage: PERAMIVIR HYDRATE
     Dates: start: 2020, end: 2020
  6. MEROPENEM [Concomitant]
     Active Substance: MEROPENEM
     Indication: Product used for unknown indication
     Dosage: MEROPENEM HYDRATE
     Dates: start: 2020, end: 2020
  7. MEROPENEM [Concomitant]
     Active Substance: MEROPENEM
  8. VANCOMYCIN HYDROCHLORIDE [Concomitant]
     Active Substance: VANCOMYCIN HYDROCHLORIDE
     Indication: Product used for unknown indication
     Dates: start: 2020, end: 2020
  9. CICLESONIDE [Concomitant]
     Active Substance: CICLESONIDE
     Indication: Product used for unknown indication
     Dates: start: 2020, end: 2020
  10. METHYLPREDNISOLONE [Concomitant]
     Active Substance: METHYLPREDNISOLONE
     Indication: Product used for unknown indication
     Dates: start: 2020, end: 2020
  11. HUMAN IMMUNOGLOBULIN G [Concomitant]
     Active Substance: HUMAN IMMUNOGLOBULIN G
     Indication: Product used for unknown indication
     Route: 042
     Dates: start: 2020, end: 2020

REACTIONS (8)
  - Endotracheal intubation [Recovering/Resolving]
  - Dependence on respirator [Recovering/Resolving]
  - Acute respiratory distress syndrome [Unknown]
  - Off label use [Unknown]
  - Organising pneumonia [Unknown]
  - Delirium [Unknown]
  - Musculoskeletal disorder [Unknown]
  - Pyrexia [Recovering/Resolving]

NARRATIVE: CASE EVENT DATE: 20200101
